FAERS Safety Report 16181665 (Version 1)
Quarter: 2019Q2

REPORT INFORMATION
  Report Type: Spontaneous
  Country: US (occurrence: US)
  Receive Date: 20190410
  Receipt Date: 20190410
  Transmission Date: 20190711
  Serious: No
  Sender: FDA-Public Use
  Company Number: US-TEVA-2019-US-1025102

PATIENT
  Sex: Male

DRUGS (1)
  1. TESTOSTERONE TOPICAL SOLUTION CIII [Suspect]
     Active Substance: TESTOSTERONE
     Dosage: FORM STRENGTH: 30/1.5 MG/ML.
     Route: 061
     Dates: start: 2017

REACTIONS (2)
  - Blood testosterone increased [Unknown]
  - Product physical issue [Unknown]

NARRATIVE: CASE EVENT DATE: 2017
